FAERS Safety Report 8878905 (Version 2)
Quarter: 2012Q4

REPORT INFORMATION
  Report Type: 
  Country: JP (occurrence: JP)
  Receive Date: 20121026
  Receipt Date: 20121206
  Transmission Date: 20130627
  Serious: Yes (Hospitalization)
  Sender: FDA-Public Use
  Company Number: JP-EISAI INC-E7389-03152-SPO-JP

PATIENT
  Age: 80 Year
  Sex: Female
  Weight: 40 kg

DRUGS (4)
  1. HALAVEN [Suspect]
     Indication: METASTATIC BREAST CANCER
     Route: 041
     Dates: start: 20121031, end: 20121107
  2. HALAVEN [Suspect]
     Route: 041
     Dates: start: 20120620, end: 20120926
  3. OXYCONTIN [Concomitant]
     Route: 048
     Dates: start: 20120529
  4. PROTECADIN [Concomitant]
     Route: 048
     Dates: start: 20120611

REACTIONS (1)
  - Pneumonia [Recovered/Resolved]
